FAERS Safety Report 19503023 (Version 2)
Quarter: 2021Q3

REPORT INFORMATION
  Report Type: Report from Study
  Country: MY (occurrence: MY)
  Receive Date: 20210707
  Receipt Date: 20210707
  Transmission Date: 20211014
  Serious: Yes (Hospitalization, Other)
  Sender: FDA-Public Use
  Company Number: MY-TAKEDA-2021TUS017029

PATIENT
  Age: 3 Year
  Sex: Male

DRUGS (3)
  1. PEGYLATED COAGULATION FACTOR VIII [Suspect]
     Active Substance: ANTIHEMOPHILIC FACTOR, PEGYLATED (MW 20000) HUMAN SEQUENCE RECOMBINANT
     Indication: PRODUCT USED FOR UNKNOWN INDICATION
     Dosage: UNK
     Route: 065
  2. PEGYLATED COAGULATION FACTOR VIII [Suspect]
     Active Substance: ANTIHEMOPHILIC FACTOR, PEGYLATED (MW 20000) HUMAN SEQUENCE RECOMBINANT
     Indication: PRODUCT USED FOR UNKNOWN INDICATION
     Dosage: UNK
     Route: 065
  3. PEGYLATED COAGULATION FACTOR VIII [Suspect]
     Active Substance: ANTIHEMOPHILIC FACTOR, PEGYLATED (MW 20000) HUMAN SEQUENCE RECOMBINANT
     Indication: PRODUCT USED FOR UNKNOWN INDICATION
     Dosage: UNK
     Route: 065

REACTIONS (3)
  - Vomiting [Unknown]
  - Haemarthrosis [Recovered/Resolved]
  - Anti factor VIII antibody positive [Recovering/Resolving]

NARRATIVE: CASE EVENT DATE: 20201217
